FAERS Safety Report 18334448 (Version 1)
Quarter: 2020Q4

REPORT INFORMATION
  Report Type: Spontaneous
  Country: US (occurrence: US)
  Receive Date: 20201001
  Receipt Date: 20201001
  Transmission Date: 20210113
  Serious: No
  Sender: FDA-Public Use
  Company Number: US-SA-2020SA266001

PATIENT

DRUGS (1)
  1. AGALSIDASE BETA [Suspect]
     Active Substance: AGALSIDASE BETA

REACTIONS (3)
  - Globotriaosylceramide increased [Unknown]
  - Glucosylsphingosine increased [Unknown]
  - Blood immunoglobulin G increased [Unknown]
